FAERS Safety Report 5986108-8 (Version None)
Quarter: 2008Q4

REPORT INFORMATION
  Report Type: 
  Country: None (occurrence: None)
  Receive Date: 20081209
  Receipt Date: 20081203
  Transmission Date: 20090506
  Serious: Yes (Hospitalization)
  Sender: FDA-Public Use
  Company Number: US-BAYER-200839869NA

PATIENT
  Age: 84 Year
  Sex: Female

DRUGS (4)
  1. CIPRO [Suspect]
     Indication: UNEVALUABLE EVENT
  2. THALIDOMIDE [Suspect]
     Indication: MULTIPLE MYELOMA
     Dosage: TOTAL DAILY DOSE: 150 MG  UNIT DOSE: 50 MG
     Route: 048
     Dates: start: 20050718, end: 20050801
  3. THALIDOMIDE [Suspect]
     Dosage: TOTAL DAILY DOSE: 200 MG  UNIT DOSE: 200 MG
     Route: 048
     Dates: start: 20050829, end: 20051201
  4. THALIDOMIDE [Suspect]
     Dosage: TOTAL DAILY DOSE: 100 MG  UNIT DOSE: 100 MG
     Route: 048
     Dates: start: 20051205

REACTIONS (2)
  - DRUG ERUPTION [None]
  - GASTROENTERITIS [None]
